FAERS Safety Report 13511359 (Version 2)
Quarter: 2019Q4

REPORT INFORMATION
  Report Type: Spontaneous
  Country: US (occurrence: US)
  Receive Date: 20170503
  Receipt Date: 20191211
  Transmission Date: 20200122
  Serious: Yes (Other)
  Sender: FDA-Public Use
  Company Number: US-TEVA-764561USA

PATIENT
  Sex: Female

DRUGS (1)
  1. PARAGARD T 380A [Suspect]
     Active Substance: COPPER
     Route: 015
     Dates: start: 20151203, end: 20160525

REACTIONS (6)
  - Abdominal pain [Recovered/Resolved]
  - Maternal exposure during pregnancy [Unknown]
  - Pelvic pain [Recovered/Resolved]
  - Pregnancy with contraceptive device [Unknown]
  - Embedded device [Recovered/Resolved]
  - Dyspareunia [Unknown]

NARRATIVE: CASE EVENT DATE: 201605
